FAERS Safety Report 19144574 (Version 1)
Quarter: 2021Q2

REPORT INFORMATION
  Report Type: Spontaneous
  Country: US (occurrence: US)
  Receive Date: 20210415
  Receipt Date: 20210415
  Transmission Date: 20210717
  Serious: Yes (Hospitalization)
  Sender: FDA-Public Use
  Company Number: None

PATIENT
  Sex: Male

DRUGS (4)
  1. MYCOPHENOLATE [Suspect]
     Active Substance: MYCOPHENOLIC ACID
     Indication: LIVER TRANSPLANT
     Route: 048
     Dates: start: 20171005
  2. TACROLIMUS. [Suspect]
     Active Substance: TACROLIMUS
     Indication: LIVER TRANSPLANT
     Route: 048
     Dates: start: 20171005
  3. VANCOMYCIN, TRESIBA, ALLOPURINOL, ROSUVASTATIN, TAMSULOSIN [Concomitant]
  4. CIPROFLOXACIN, PREDNISONE, OMEPRAZOLE, URSODIOL [Concomitant]

REACTIONS (2)
  - Gastrointestinal disorder [None]
  - Gastrointestinal infection [None]
